FAERS Safety Report 21447149 (Version 2)
Quarter: 2023Q1

REPORT INFORMATION
  Report Type: Spontaneous
  Country: US (occurrence: US)
  Receive Date: 20221012
  Receipt Date: 20230214
  Transmission Date: 20230417
  Serious: Yes (Hospitalization)
  Sender: FDA-Public Use
  Company Number: US-BRISTOL-MYERS SQUIBB COMPANY-2022-117649

PATIENT
  Age: 83 Year
  Sex: Female
  Weight: 78 kg

DRUGS (2)
  1. REVLIMID [Suspect]
     Active Substance: LENALIDOMIDE
     Indication: Myelodysplastic syndrome
     Dosage: 21 DAYS 0N AND 7 DAYS OFF
     Route: 048
  2. REVLIMID [Suspect]
     Active Substance: LENALIDOMIDE
     Dosage: 21 DAYS 0N AND 7 DAYS OFF
     Route: 048
     Dates: start: 20220901

REACTIONS (3)
  - Fall [Recovering/Resolving]
  - COVID-19 [Recovering/Resolving]
  - Red blood cell count increased [Recovering/Resolving]
